FAERS Safety Report 4371173-4 (Version None)
Quarter: 2004Q2

REPORT INFORMATION
  Report Type: 
  Country: None (occurrence: None)
  Receive Date: 20040604
  Receipt Date: 20040525
  Transmission Date: 20050107
  Serious: Yes (Hospitalization)
  Sender: FDA-Public Use
  Company Number: SE-ROCHE-368590

PATIENT
  Age: 59 Year
  Sex: Female

DRUGS (1)
  1. XENICAL [Suspect]
     Indication: OBESITY
     Route: 048
     Dates: start: 20040515, end: 20040519

REACTIONS (3)
  - ARRHYTHMIA [None]
  - DIARRHOEA [None]
  - HEART RATE DECREASED [None]
